FAERS Safety Report 23092435 (Version 1)
Quarter: 2023Q4

REPORT INFORMATION
  Report Type: Spontaneous
  Country: US (occurrence: US)
  Receive Date: 20231021
  Receipt Date: 20231021
  Transmission Date: 20240109
  Serious: Yes (Life-Threatening, Hospitalization, Other)
  Sender: FDA-Public Use
  Company Number: US-MLMSERVICE-20231004-4591151-1

PATIENT
  Age: 56 Year
  Sex: Male

DRUGS (1)
  1. HYDROCHLOROTHIAZIDE [Suspect]
     Active Substance: HYDROCHLOROTHIAZIDE
     Indication: Product used for unknown indication

REACTIONS (8)
  - Metabolic alkalosis [Recovered/Resolved]
  - Alkalosis hypochloraemic [Recovered/Resolved]
  - Encephalopathy [Unknown]
  - Respiratory failure [Unknown]
  - Hypovolaemia [Recovered/Resolved]
  - Respiratory acidosis [Recovered/Resolved]
  - Alkalosis hypokalaemic [Recovered/Resolved]
  - Hyponatraemia [Recovered/Resolved]
